FAERS Safety Report 15797882 (Version 1)
Quarter: 2019Q1

REPORT INFORMATION
  Report Type: Spontaneous
  Country: CN (occurrence: CN)
  Receive Date: 20190108
  Receipt Date: 20190108
  Transmission Date: 20190417
  Serious: Yes (Hospitalization)
  Sender: FDA-Public Use
  Company Number: CN-ROCHE-2241040

PATIENT
  Age: 84 Year
  Sex: Male

DRUGS (4)
  1. ACTILYSE [Suspect]
     Active Substance: ALTEPLASE
     Indication: CEREBROVASCULAR ACCIDENT
     Route: 065
     Dates: start: 20181030, end: 20181030
  2. TIROFIBAN [Concomitant]
     Active Substance: TIROFIBAN
  3. ACTILYSE [Suspect]
     Active Substance: ALTEPLASE
     Indication: THROMBOLYSIS
  4. BUTYLPHTHALIDE [Concomitant]
     Active Substance: BUTYLPHTHALIDE

REACTIONS (3)
  - Confusional state [Unknown]
  - Off label use [Unknown]
  - Condition aggravated [Unknown]

NARRATIVE: CASE EVENT DATE: 20181030
